FAERS Safety Report 18043871 (Version 2)
Quarter: 2022Q1

REPORT INFORMATION
  Report Type: Other
  Country: JP (occurrence: None)
  Receive Date: 20200720
  Receipt Date: 20220312
  Transmission Date: 20220424
  Serious: Yes (Hospitalization, Other)
  Sender: FDA-Public Use
  Company Number: JP-NEOPHARMA INC-000344

PATIENT
  Age: 75 Year
  Sex: Male

DRUGS (21)
  1. IRINOTECAN [Suspect]
     Active Substance: IRINOTECAN
     Indication: Product used for unknown indication
     Dosage: FROM OCTOBER 2018, IRI 100 MG WAS STARTED.
     Dates: start: 201810
  2. BEVACIZUMAB [Suspect]
     Active Substance: BEVACIZUMAB
     Indication: Product used for unknown indication
     Dosage: FROM APRIL 2017, FOLFIRI WITH BEVACIZUMAB (BEV 275 MG) WAS STARTED.
     Dates: start: 201704
  3. FLUOROURACIL [Suspect]
     Active Substance: FLUOROURACIL
     Indication: Product used for unknown indication
     Dosage: FROM OCTOBER 2018, 5-FU (RAPID) 500 MG, 5-FU (SUSTAINED) 3,000 MG WERE STARTED.
     Dates: start: 201810
  4. RAMUCIRUMAB [Suspect]
     Active Substance: RAMUCIRUMAB
     Indication: Product used for unknown indication
     Dosage: FROM OCTOBER 2018, FOLFIRI WITH RAMUCIRUMAB (RAM 368 MG) WAS STARTED.
     Dates: start: 201810
  5. LEVOLEUCOVORIN CALCIUM [Suspect]
     Active Substance: LEVOLEUCOVORIN CALCIUM
     Indication: Product used for unknown indication
     Dosage: FROM OCTOBER 2018, L-LV 304 MG WAS STARTED.
     Dates: start: 201810
  6. MAGNESIUM OXIDE [Concomitant]
     Active Substance: MAGNESIUM OXIDE
     Indication: Product used for unknown indication
     Route: 048
  7. LANSOPRAZOLE [Concomitant]
     Active Substance: LANSOPRAZOLE
     Indication: Product used for unknown indication
     Route: 048
  8. REBAMIPIDE [Concomitant]
     Active Substance: REBAMIPIDE
     Indication: Product used for unknown indication
     Route: 048
  9. oxesazein [Concomitant]
     Indication: Product used for unknown indication
  10. HERBALS [Concomitant]
     Active Substance: HERBALS
     Indication: Product used for unknown indication
  11. IRINOTECAN [Suspect]
     Active Substance: IRINOTECAN
     Indication: Product used for unknown indication
     Dosage: IRI 40% DOSE (100 MG) FROM 21ST COURSE.
  12. IRINOTECAN [Suspect]
     Active Substance: IRINOTECAN
     Indication: Product used for unknown indication
     Dosage: IRI 45% DOSE (110 MG) FROM 17TH COURSE.
  13. IRINOTECAN [Suspect]
     Active Substance: IRINOTECAN
     Indication: Product used for unknown indication
     Dosage: IRI ONLY 50% DOSE (120 MG) FROM THE 15TH COURSE.
  14. IRINOTECAN [Suspect]
     Active Substance: IRINOTECAN
     Indication: Product used for unknown indication
     Dosage: IRI ONLY 60% DOSE FROM THE 7TH COURSE (150 MG).
  15. IRINOTECAN [Suspect]
     Active Substance: IRINOTECAN
     Indication: Product used for unknown indication
     Dosage: IRI ONLY 70% AMOUNT (180 MG) FROM THE 6TH COURSE.
  16. IRINOTECAN [Suspect]
     Active Substance: IRINOTECAN
     Indication: Product used for unknown indication
     Dosage: IRI ONLY 80% AMOUNT (200 MG) FROM THE 2ND COURSE.
  17. IRINOTECAN [Suspect]
     Active Substance: IRINOTECAN
     Indication: Product used for unknown indication
     Dosage: FROM APRIL 2017, IRI 240 MG WAS STARTED.
     Dates: start: 201704
  18. FLUOROURACIL [Suspect]
     Active Substance: FLUOROURACIL
     Indication: Product used for unknown indication
     Dosage: 5-FU (SUSTAINED) 80% DOSE 3,000 MG FROM THE 21ST COURSE.
  19. FLUOROURACIL [Suspect]
     Active Substance: FLUOROURACIL
     Indication: Product used for unknown indication
     Dosage: 5-FU (SUSTAINED) 90% DOSE (3,500 MG).
     Dates: start: 201810
  20. FLUOROURACIL [Suspect]
     Active Substance: FLUOROURACIL
     Indication: Product used for unknown indication
     Dosage: FROM APRIL 2017, 5-FU (RAPID) 650 MG, 5-FU (SUSTAINED) 3,750 MG WERE STARTED.
     Dates: start: 201704
  21. LEVOLEUCOVORIN CALCIUM [Suspect]
     Active Substance: LEVOLEUCOVORIN CALCIUM
     Indication: Product used for unknown indication
     Dosage: FROM APRIL 2017, L-LV 325 MG WAS STARTED.
     Dates: start: 201704

REACTIONS (5)
  - Neuropathy peripheral [Unknown]
  - Decreased appetite [Unknown]
  - Abdominal pain upper [Unknown]
  - Condition aggravated [Unknown]
  - Neutropenia [Unknown]
